FAERS Safety Report 4568679-1 (Version None)
Quarter: 2005Q1

REPORT INFORMATION
  Report Type: 
  Country: None (occurrence: None)
  Receive Date: 20050202
  Receipt Date: 20050124
  Transmission Date: 20050727
  Serious: No
  Sender: FDA-Public Use
  Company Number: FR-MERCK-0501FRA00062

PATIENT
  Age: 46 Year
  Sex: Female

DRUGS (3)
  1. NOROXIN [Suspect]
     Indication: PROPHYLAXIS
     Route: 048
     Dates: start: 20041101, end: 20050101
  2. MAGNESIUM LACTATE AND PYRIDOXINE HYDROCHLORIDE [Concomitant]
     Route: 048
  3. FLUMEQUINE [Suspect]
     Indication: PROPHYLAXIS
     Route: 048
     Dates: start: 20050101

REACTIONS (2)
  - DERMATITIS BULLOUS [None]
  - RASH PRURITIC [None]
